FAERS Safety Report 20163425 (Version 1)
Quarter: 2021Q4

REPORT INFORMATION
  Report Type: Spontaneous
  Country: US (occurrence: US)
  Receive Date: 20211209
  Receipt Date: 20211209
  Transmission Date: 20220303
  Serious: No
  Sender: FDA-Public Use
  Company Number: US-GLAXOSMITHKLINE-US2021AMR250286

PATIENT
  Age: 46 Year
  Sex: Female

DRUGS (2)
  1. IMITREX [Interacting]
     Active Substance: SUMATRIPTAN SUCCINATE
     Indication: Migraine
     Dosage: UNK
     Dates: start: 2016
  2. DUPIXENT [Interacting]
     Active Substance: DUPILUMAB
     Indication: Dermatitis atopic
     Dosage: 300 MG, QOW

REACTIONS (5)
  - Drug hypersensitivity [Not Recovered/Not Resolved]
  - Drug interaction [Unknown]
  - Swollen tongue [Unknown]
  - Pruritus [Unknown]
  - Rash [Unknown]
